FAERS Safety Report 9398591 (Version 2)
Quarter: 2013Q3

REPORT INFORMATION
  Report Type: Spontaneous
  Country: US (occurrence: US)
  Receive Date: 20130712
  Receipt Date: 20130718
  Transmission Date: 20140515
  Serious: Yes (Other)
  Sender: FDA-Public Use
  Company Number: PHHY2013US072302

PATIENT
  Age: 16 Year
  Sex: Female

DRUGS (4)
  1. VINCRISTINE [Suspect]
     Indication: T-CELL TYPE ACUTE LEUKAEMIA
  2. PREDNISONE [Suspect]
     Indication: T-CELL TYPE ACUTE LEUKAEMIA
  3. DAUNORUBICIN [Suspect]
     Indication: T-CELL TYPE ACUTE LEUKAEMIA
  4. ASPARAGINASE [Suspect]
     Indication: T-CELL TYPE ACUTE LEUKAEMIA
     Dosage: (3 DOSES, UNSEPCFIED DOSE)

REACTIONS (4)
  - Jugular vein thrombosis [Recovered/Resolved]
  - Convulsion [Recovered/Resolved]
  - Disorientation [Unknown]
  - Haemorrhagic infarction [Unknown]
